FAERS Safety Report 8859678 (Version 1)
Quarter: 2012Q4

REPORT INFORMATION
  Report Type: 
  Country: US (occurrence: US)
  Receive Date: 20121025
  Receipt Date: 20121025
  Transmission Date: 20130627
  Serious: No
  Sender: FDA-Public Use
  Company Number: US-ABBOTT-12P-163-0907538-00

PATIENT
  Sex: Female

DRUGS (4)
  1. LUPRON DEPOT 3.75 MG [Suspect]
     Indication: ENDOMETRIOSIS
     Dates: start: 20111221
  2. PRINIVIL [Suspect]
     Indication: HYPERTENSION
     Dates: start: 201112
  3. EXCEDRIN [Concomitant]
     Indication: MIGRAINE
  4. CLARITIN [Concomitant]
     Indication: SEASONAL ALLERGY

REACTIONS (2)
  - Alopecia [Recovering/Resolving]
  - Alopecia [Recovering/Resolving]
